FAERS Safety Report 18321967 (Version 1)
Quarter: 2020Q3

REPORT INFORMATION
  Report Type: Report from Study
  Country: None (occurrence: US)
  Receive Date: 20200929
  Receipt Date: 20200929
  Transmission Date: 20201103
  Serious: Yes (Other)
  Sender: FDA-Public Use
  Company Number: US-ABBVIE-20K-163-3573954-00

PATIENT
  Age: 35 Year
  Sex: Male
  Weight: 72.19 kg

DRUGS (1)
  1. HUMIRA [Suspect]
     Active Substance: ADALIMUMAB
     Indication: COLITIS ULCERATIVE
     Route: 058
     Dates: start: 2018

REACTIONS (3)
  - Food allergy [Unknown]
  - Anaphylactic shock [Recovered/Resolved]
  - Oral pruritus [Unknown]

NARRATIVE: CASE EVENT DATE: 20200911
